FAERS Safety Report 5008369-4 (Version None)
Quarter: 2006Q2

REPORT INFORMATION
  Report Type: 
  Country: None (occurrence: None)
  Receive Date: 20060518
  Receipt Date: 20060508
  Transmission Date: 20061013
  Serious: Yes (Death, Other)
  Sender: FDA-Public Use
  Company Number: 2006-DE-02291GD

PATIENT
  Age: 63 Year
  Sex: Male

DRUGS (1)
  1. PREDNISONE TAB [Suspect]
     Indication: CHRONIC LYMPHOCYTIC LEUKAEMIA
     Dosage: 15 MG

REACTIONS (3)
  - BACTERIAL INFECTION [None]
  - LUNG DISORDER [None]
  - MENINGITIS CRYPTOCOCCAL [None]
